FAERS Safety Report 7263276-1 (Version None)
Quarter: 2011Q1

REPORT INFORMATION
  Report Type: 
  Country: None (occurrence: None)
  Receive Date: 20110130
  Receipt Date: 20101014
  Transmission Date: 20110831
  Serious: No
  Sender: FDA-Public Use
  Company Number: US-ABBOTT-10P-163-0678576-00

PATIENT
  Age: 51 Year
  Sex: Female
  Weight: 73.094 kg

DRUGS (5)
  1. CALCIUM [Concomitant]
     Indication: PRODUCT USED FOR UNKNOWN INDICATION
  2. MULTI-VITAMIN [Concomitant]
     Indication: PRODUCT USED FOR UNKNOWN INDICATION
  3. HUMIRA [Suspect]
     Indication: CROHN'S DISEASE
  4. VITAMIN D [Concomitant]
     Indication: PRODUCT USED FOR UNKNOWN INDICATION
  5. ESTROGEN-N-ETHYLTEST DS [Concomitant]
     Indication: PRODUCT USED FOR UNKNOWN INDICATION
     Dosage: AT H.S.

REACTIONS (11)
  - INJECTION SITE PAIN [None]
  - INJECTION SITE HAEMORRHAGE [None]
  - INCREASED TENDENCY TO BRUISE [None]
  - VOMITING [None]
  - EXCORIATION [None]
  - UNDERDOSE [None]
  - DEVICE MALFUNCTION [None]
  - SINUSITIS [None]
  - CANDIDIASIS [None]
  - HAEMORRHAGIC DISORDER [None]
  - WEIGHT LOSS POOR [None]
